FAERS Safety Report 23298000 (Version 1)
Quarter: 2023Q4

REPORT INFORMATION
  Report Type: Spontaneous
  Country: ES (occurrence: ES)
  Receive Date: 20231214
  Receipt Date: 20231214
  Transmission Date: 20240110
  Serious: Yes (Hospitalization)
  Sender: FDA-Public Use
  Company Number: None

PATIENT
  Age: 91 Year
  Sex: Male
  Weight: 63 kg

DRUGS (3)
  1. FUROSEMIDE [Suspect]
     Active Substance: FUROSEMIDE
     Indication: Cardiac failure
     Dosage: 120 MG DAILY CONTINUOUS INFUSION?ROUTE OF ADMIN.- INTRAVENOUS (NOT OTHERWISE SPECIFIED) ( INT )
     Route: 042
     Dates: start: 20231005, end: 20231018
  2. CHLORTHALIDONE [Suspect]
     Active Substance: CHLORTHALIDONE
     Indication: Cardiac failure
     Dosage: 25 MG EVERY 48 HOURS??ROUTE OF ADMIN.- ORAL
     Dates: start: 20231005, end: 20231018
  3. ACETAZOLAMIDE [Suspect]
     Active Substance: ACETAZOLAMIDE
     Indication: Cardiac failure
     Dosage: 1 TABLET ON MONDAYS AND THURSDAYS?ROUTE OF ADMIN.- ORAL?FORM OF ADMIN.- TABLET
     Dates: start: 20231005, end: 20231018

REACTIONS (3)
  - Hyponatraemia [Recovered/Resolved]
  - Neurological decompensation [Recovered/Resolved]
  - Acute kidney injury [Recovered/Resolved]

NARRATIVE: CASE EVENT DATE: 20231018
